FAERS Safety Report 13777578 (Version 5)
Quarter: 2018Q2

REPORT INFORMATION
  Report Type: Report from Study
  Country: EC (occurrence: EC)
  Receive Date: 20170721
  Receipt Date: 20180511
  Transmission Date: 20180711
  Serious: Yes (Other)
  Sender: FDA-Public Use
  Company Number: PHHY2017EC082484

PATIENT
  Age: 45 Year
  Sex: Male
  Weight: 70 kg

DRUGS (5)
  1. INVIGAN [Concomitant]
     Indication: IRRITABLE BOWEL SYNDROME
     Dosage: 20 MG, Q12H
     Route: 048
     Dates: start: 20170504
  2. COSENTYX [Suspect]
     Active Substance: SECUKINUMAB
     Dosage: UNK
     Route: 058
     Dates: start: 20170731
  3. COSENTYX [Suspect]
     Active Substance: SECUKINUMAB
     Indication: ANKYLOSING SPONDYLITIS
     Dosage: 150 MG, QMO
     Route: 058
     Dates: start: 20170503
  4. ENDIAL DIGEST [Concomitant]
     Indication: IRRITABLE BOWEL SYNDROME
     Dosage: 20 MG, QID
     Route: 048
     Dates: start: 20170504
  5. COSENTYX [Suspect]
     Active Substance: SECUKINUMAB
     Dosage: UNK
     Route: 058

REACTIONS (19)
  - Haemorrhoids [Recovering/Resolving]
  - Pain in extremity [Not Recovered/Not Resolved]
  - Irritable bowel syndrome [Unknown]
  - Weight decreased [Unknown]
  - Constipation [Recovering/Resolving]
  - Influenza [Recovered/Resolved]
  - Colitis [Recovering/Resolving]
  - Muscle atrophy [Unknown]
  - Abdominal pain upper [Recovering/Resolving]
  - Musculoskeletal pain [Recovered/Resolved]
  - Back pain [Recovered/Resolved]
  - Colitis ulcerative [Unknown]
  - Enthesopathy [Not Recovered/Not Resolved]
  - Infection parasitic [Unknown]
  - Malaise [Unknown]
  - Diarrhoea [Recovering/Resolving]
  - Haemorrhage [Recovering/Resolving]
  - Arthralgia [Not Recovered/Not Resolved]
  - Discomfort [Not Recovered/Not Resolved]

NARRATIVE: CASE EVENT DATE: 20170525
